FAERS Safety Report 4699486-7 (Version None)
Quarter: 2005Q2

REPORT INFORMATION
  Report Type: 
  Country: None (occurrence: None)
  Receive Date: 20050622
  Receipt Date: 20050608
  Transmission Date: 20051028
  Serious: Yes (Death)
  Sender: FDA-Public Use
  Company Number: 2005JP001169

PATIENT
  Age: 80 Year
  Sex: Male

DRUGS (9)
  1. PROGRAF [Suspect]
     Indication: MYASTHENIA GRAVIS
     Dosage: 3.00 MG, UNKNOWN/D, UNKNOWN
     Route: 065
     Dates: start: 20050406, end: 20050517
  2. NORVASC /DEN/ (AMLODIPINE BESILATE) [Concomitant]
  3. PHENYTOIN [Concomitant]
  4. MESTINON [Concomitant]
  5. PREDNISOLONE [Concomitant]
  6. DIOVAN [Concomitant]
  7. SCOPOLIA EXTRACT [Concomitant]
  8. LENDORM [Concomitant]
  9. ATARAX [Concomitant]

REACTIONS (2)
  - INJURY ASPHYXIATION [None]
  - POST PROCEDURAL COMPLICATION [None]
